FAERS Safety Report 5053877-3 (Version None)
Quarter: 2006Q3

REPORT INFORMATION
  Report Type: 
  Country: None (occurrence: None)
  Receive Date: 20060718
  Receipt Date: 20060707
  Transmission Date: 20061208
  Serious: Yes (Hospitalization)
  Sender: FDA-Public Use
  Company Number: US-JNJFOC-20060702448

PATIENT
  Sex: Female
  Weight: 86.18 kg

DRUGS (1)
  1. FENTANYL TRANSDERMAL SYSTEM [Suspect]
     Indication: PAIN
     Route: 062

REACTIONS (4)
  - BIPOLAR DISORDER [None]
  - NEPHROLITHIASIS [None]
  - PNEUMONIA [None]
  - URINARY TRACT INFECTION [None]
